FAERS Safety Report 11746902 (Version 1)
Quarter: 2015Q4

REPORT INFORMATION
  Report Type: Spontaneous
  Country: US (occurrence: None)
  Receive Date: 20151116
  Receipt Date: 20151116
  Transmission Date: 20160304
  Serious: No
  Sender: FDA-Public Use
  Company Number: None

PATIENT
  Age: 63 Year
  Sex: Male

DRUGS (1)
  1. NEXAVAR [Suspect]
     Active Substance: SORAFENIB
     Indication: NEOPLASM MALIGNANT
     Route: 048
     Dates: start: 20151028, end: 20151029

REACTIONS (4)
  - Ammonia increased [None]
  - Encephalopathy [None]
  - Blood pressure increased [None]
  - Blood potassium decreased [None]

NARRATIVE: CASE EVENT DATE: 20151030
